FAERS Safety Report 17652264 (Version 4)
Quarter: 2021Q1

REPORT INFORMATION
  Report Type: Spontaneous
  Country: US (occurrence: US)
  Receive Date: 20200409
  Receipt Date: 20210304
  Transmission Date: 20210419
  Serious: Yes (Disabling)
  Sender: FDA-Public Use
  Company Number: US-AMERICAN REGENT INC-20191451

PATIENT
  Age: 68 Year
  Sex: Male
  Weight: 78.46 kg

DRUGS (61)
  1. INJECTAFER [Suspect]
     Active Substance: FERRIC CARBOXYMALTOSE
     Indication: HEREDITARY HAEMORRHAGIC TELANGIECTASIA
     Dosage: 750 MILLIGRAM IN NACI 0.9% 250 ML, SINGLE
     Route: 042
     Dates: start: 20170501, end: 20170501
  2. INJECTAFER [Suspect]
     Active Substance: FERRIC CARBOXYMALTOSE
     Dosage: 750 MILLIGRAM IN NACI 0.9% 250 ML, SINGLE
     Route: 042
     Dates: start: 20170508, end: 20170508
  3. INJECTAFER [Suspect]
     Active Substance: FERRIC CARBOXYMALTOSE
     Dosage: 750 MILLIGRAM IN NACL 0.9% 250 ML, SINGLE
     Route: 042
     Dates: start: 20170901, end: 20170901
  4. INJECTAFER [Suspect]
     Active Substance: FERRIC CARBOXYMALTOSE
     Dosage: 750 MILLIGRAM IN NACL 0.9% 250 ML, SINGLE
     Route: 042
     Dates: start: 20170908, end: 20170908
  5. INJECTAFER [Suspect]
     Active Substance: FERRIC CARBOXYMALTOSE
     Dosage: 750 MILLIGRAM IN NACI 0.9% 250 ML, SINGLE
     Route: 042
     Dates: start: 20180827, end: 20180827
  6. CALCIUM 600 + D [Concomitant]
     Active Substance: CALCIUM\VITAMIN D
     Indication: OSTEOPOROSIS
     Dosage: TWO TABLETS
     Route: 048
     Dates: start: 2016
  7. MULTI VITAMIN [Concomitant]
     Active Substance: VITAMINS
     Indication: OSTEOPOROSIS
     Dosage: 1 TABLET , QD
     Route: 048
     Dates: start: 2016
  8. CLARITIN [Concomitant]
     Active Substance: LORATADINE
     Indication: SINUS DISORDER
     Dosage: 10 MILLIGRAM, QD PRN
     Route: 048
     Dates: start: 2015
  9. CLARITIN [Concomitant]
     Active Substance: LORATADINE
     Indication: HYPERSENSITIVITY
  10. INJECTAFER [Suspect]
     Active Substance: FERRIC CARBOXYMALTOSE
     Dosage: 750 MILLIGRAM, SINGLE
     Route: 042
     Dates: start: 20170710, end: 20170710
  11. INJECTAFER [Suspect]
     Active Substance: FERRIC CARBOXYMALTOSE
     Dosage: 750 MILLIGRAM IN NACL 0.9% 250 ML, SINGLE
     Route: 042
     Dates: start: 20170807, end: 20170807
  12. INJECTAFER [Suspect]
     Active Substance: FERRIC CARBOXYMALTOSE
     Dosage: 750 MILLIGRAM, SINGLE
     Route: 042
     Dates: start: 20180122, end: 20180122
  13. INJECTAFER [Suspect]
     Active Substance: FERRIC CARBOXYMALTOSE
     Dosage: 750 MILLIGRAM IN NACI 0.9% 250 ML, SINGLE
     Route: 042
     Dates: start: 20180924, end: 20180924
  14. INJECTAFER [Suspect]
     Active Substance: FERRIC CARBOXYMALTOSE
     Dosage: 750 MILLIGRAM IN NACI 0.9% 250 ML, SINGLE
     Route: 042
     Dates: start: 20190304, end: 20190304
  15. MULTI VITAMIN [Concomitant]
     Active Substance: VITAMINS
     Indication: VITAMIN SUPPLEMENTATION
     Dosage: 1 TABLET , QD
     Route: 048
     Dates: start: 1970
  16. AVASTIN [Concomitant]
     Active Substance: BEVACIZUMAB
     Indication: HEREDITARY HAEMORRHAGIC TELANGIECTASIA
  17. INJECTAFER [Suspect]
     Active Substance: FERRIC CARBOXYMALTOSE
     Dosage: 750 MILLIGRAM IN NACI 0.9% 250 ML SINGLE
     Route: 042
     Dates: start: 20170602, end: 20170602
  18. INJECTAFER [Suspect]
     Active Substance: FERRIC CARBOXYMALTOSE
     Dosage: 750 MILLIGRAM IN NACL 0.9% 250 ML, SINGLE
     Route: 042
     Dates: start: 20170821, end: 20170821
  19. INJECTAFER [Suspect]
     Active Substance: FERRIC CARBOXYMALTOSE
     Dosage: 750 MILLIGRAM IN NACI 0.9% 250 ML, SINGLE
     Route: 042
     Dates: start: 20180507, end: 20180507
  20. INJECTAFER [Suspect]
     Active Substance: FERRIC CARBOXYMALTOSE
     Dosage: 750 MILLIGRAM IN NACL 0.9% 250 ML, SINGLE
     Route: 042
     Dates: start: 20180611, end: 20180611
  21. INJECTAFER [Suspect]
     Active Substance: FERRIC CARBOXYMALTOSE
     Dosage: 750 MILLIGRAM IN NACI 0.9% 250 ML, SINGLE
     Route: 042
     Dates: start: 20180709, end: 20180709
  22. INJECTAFER [Suspect]
     Active Substance: FERRIC CARBOXYMALTOSE
     Dosage: 750 MILLIGRAM IN NACI 0.9% 250 ML, SINGLE
     Route: 042
     Dates: start: 20180806, end: 20180806
  23. INJECTAFER [Suspect]
     Active Substance: FERRIC CARBOXYMALTOSE
     Dosage: 750 MILLIGRAM IN NACI 0.9% 250 ML, SINGLE
     Route: 042
     Dates: start: 20181105, end: 20181105
  24. INJECTAFER [Suspect]
     Active Substance: FERRIC CARBOXYMALTOSE
     Dosage: 750 MILLIGRAM IN NACI 0.9% 250 ML, SINGLE
     Route: 042
     Dates: start: 20181119, end: 20181119
  25. INJECTAFER [Suspect]
     Active Substance: FERRIC CARBOXYMALTOSE
     Dosage: 750 MILLIGRAM IN NACI 0.9% 250 ML, SINGLE
     Route: 042
     Dates: start: 20181217, end: 20181217
  26. CALCIUM 600 + D [Concomitant]
     Active Substance: CALCIUM\VITAMIN D
     Indication: OSTEOPENIA
     Dosage: 600 MILLIGRAM, TAKE 2 TABLETS BY MOUTH ONCE DAILY
     Route: 048
     Dates: start: 2016
  27. INJECTAFER [Suspect]
     Active Substance: FERRIC CARBOXYMALTOSE
     Dosage: 750 MILLIGRAM IN NACL 0.9% 250 ML, SINGLE
     Route: 042
     Dates: start: 20170814, end: 20170814
  28. INJECTAFER [Suspect]
     Active Substance: FERRIC CARBOXYMALTOSE
     Dosage: 750 MILLIGRAM, SINGLE
     Route: 042
     Dates: start: 20171212, end: 20171212
  29. INJECTAFER [Suspect]
     Active Substance: FERRIC CARBOXYMALTOSE
     Dosage: 750 MILLIGRAM, SINGLE
     Route: 042
     Dates: start: 20180707, end: 20180707
  30. INJECTAFER [Suspect]
     Active Substance: FERRIC CARBOXYMALTOSE
     Dosage: 750 MILLIGRAM IN NACI 0.9% 250 ML, SINGLE
     Route: 042
     Dates: start: 20181231, end: 20181231
  31. FLUTICASONE PROPIONATE. [Concomitant]
     Active Substance: FLUTICASONE PROPIONATE
     Indication: EPISTAXIS
     Dosage: 2 SPRAYS EACH NOSTRIL, QD
     Route: 045
     Dates: start: 201505
  32. INJECTAFER [Suspect]
     Active Substance: FERRIC CARBOXYMALTOSE
     Dosage: 750 MILLIGRAM IN NACL 0.9% 250 ML, SINGLE
     Route: 042
     Dates: start: 20170731, end: 20170731
  33. INJECTAFER [Suspect]
     Active Substance: FERRIC CARBOXYMALTOSE
     Dosage: 750 MILLIGRAM IN NACI 0.9% 250 ML, SINGLE
     Route: 042
     Dates: start: 20171013, end: 20171013
  34. INJECTAFER [Suspect]
     Active Substance: FERRIC CARBOXYMALTOSE
     Dosage: 750 MILLIGRAM, SINGLE
     Route: 042
     Dates: start: 20171127, end: 20171127
  35. INJECTAFER [Suspect]
     Active Substance: FERRIC CARBOXYMALTOSE
     Dosage: 750 MILLIGRAM, SINGLE
     Route: 042
     Dates: start: 20171226, end: 20171226
  36. INJECTAFER [Suspect]
     Active Substance: FERRIC CARBOXYMALTOSE
     Dosage: 750 MILLIGRAM, SINGLE
     Route: 042
     Dates: start: 20180319, end: 20180319
  37. INJECTAFER [Suspect]
     Active Substance: FERRIC CARBOXYMALTOSE
     Dosage: 750 MILLIGRAM IN NACI 0.9% 250 ML, SINGLE
     Route: 042
     Dates: start: 20181203, end: 20181203
  38. CALCIUM 600 + D [Concomitant]
     Active Substance: CALCIUM\VITAMIN D
     Indication: VITAMIN SUPPLEMENTATION
  39. AMOXICILLIN. [Concomitant]
     Active Substance: AMOXICILLIN
     Indication: PROPHYLAXIS
     Dosage: 500 MILLIGRAM 4 CAPSULES 30?60 MIN PRIOR TO DENTAL PROCEDURE
     Route: 065
     Dates: start: 2016
  40. TYLENOL [Concomitant]
     Active Substance: ACETAMINOPHEN
     Indication: SINUS HEADACHE
     Dosage: 1000 MILLIGRAM, PRN
     Dates: start: 2015
  41. LEVOTHYROXINE. [Concomitant]
     Active Substance: LEVOTHYROXINE
     Indication: PRODUCT USED FOR UNKNOWN INDICATION
     Dosage: 75 MICROGRAM, QD
     Route: 048
     Dates: start: 2018
  42. INJECTAFER [Suspect]
     Active Substance: FERRIC CARBOXYMALTOSE
     Dosage: 750 MILLIGRAM IN NACL 0.9% 250 ML, SINGLE
     Route: 042
     Dates: start: 20170922, end: 20170922
  43. INJECTAFER [Suspect]
     Active Substance: FERRIC CARBOXYMALTOSE
     Dosage: 750 MILLIGRAM IN NACL 0.9% 250 ML, SINGLE
     Route: 042
     Dates: start: 20170929, end: 20170929
  44. INJECTAFER [Suspect]
     Active Substance: FERRIC CARBOXYMALTOSE
     Dosage: 750 MILLIGRAM, SINGLE
     Route: 042
     Dates: start: 20180205, end: 20180205
  45. INJECTAFER [Suspect]
     Active Substance: FERRIC CARBOXYMALTOSE
     Dosage: 750 MILLIGRAM, SINGLE
     Route: 042
     Dates: start: 20180219, end: 20180219
  46. INJECTAFER [Suspect]
     Active Substance: FERRIC CARBOXYMALTOSE
     Dosage: 750 MILLIGRAM IN NACI 0.9% 250 ML, SINGLE
     Route: 042
     Dates: start: 20181022, end: 20181022
  47. INJECTAFER [Suspect]
     Active Substance: FERRIC CARBOXYMALTOSE
     Dosage: 750 MILLIGRAM IN NACI 0.9% 250 ML, SINGLE
     Route: 042
     Dates: start: 20190218, end: 20190218
  48. LEVAQUIN [Concomitant]
     Active Substance: LEVOFLOXACIN
     Indication: SINUSITIS
     Dosage: 500 MILLIGRAM, QD
     Route: 048
  49. DOCUSATE SODIUM. [Concomitant]
     Active Substance: DOCUSATE SODIUM
     Indication: PRODUCT USED FOR UNKNOWN INDICATION
     Dosage: 100 MILLIGRAM, QD
     Route: 048
     Dates: start: 2018
  50. INJECTAFER [Suspect]
     Active Substance: FERRIC CARBOXYMALTOSE
     Dosage: 750 MILLIGRAM IN NACI 0.9% 250 ML, SINGLE
     Route: 042
     Dates: start: 20171030, end: 20171030
  51. INJECTAFER [Suspect]
     Active Substance: FERRIC CARBOXYMALTOSE
     Dosage: 750 MILLIGRAM, SINGLE
     Route: 042
     Dates: start: 20180108, end: 20180108
  52. INJECTAFER [Suspect]
     Active Substance: FERRIC CARBOXYMALTOSE
     Dosage: 750 MILLIGRAM, SINGLE
     Route: 042
     Dates: start: 20180416, end: 20180416
  53. INJECTAFER [Suspect]
     Active Substance: FERRIC CARBOXYMALTOSE
     Dosage: 750 MILLIGRAM IN NACI 0.9% 250 ML, SINGLE
     Route: 042
     Dates: start: 20190114, end: 20190114
  54. INJECTAFER [Suspect]
     Active Substance: FERRIC CARBOXYMALTOSE
     Dosage: 750 MILLIGRAM IN NACI 0.9% 250 ML, SINGLE
     Route: 042
     Dates: start: 20190131, end: 20190131
  55. AVASTIN [Concomitant]
     Active Substance: BEVACIZUMAB
     Indication: EPISTAXIS
     Dosage: 390MG Q 2WK X 6CYCLES, THEN 390MG Q 2MONTH X 12MONTHS
     Route: 042
     Dates: start: 20181127, end: 20191230
  56. INJECTAFER [Suspect]
     Active Substance: FERRIC CARBOXYMALTOSE
     Indication: IRON DEFICIENCY ANAEMIA
     Dosage: 750 MG; WEEKLY, BIWEEKLY AND/OR MONTHLY RECEIVED 41 TIMES
     Dates: start: 20170501, end: 20190304
  57. INJECTAFER [Suspect]
     Active Substance: FERRIC CARBOXYMALTOSE
     Dosage: 750 MILLIGRAM
     Route: 042
     Dates: start: 20170522, end: 20170522
  58. INJECTAFER [Suspect]
     Active Substance: FERRIC CARBOXYMALTOSE
     Dosage: 750 MILLIGRAM IN NACI 0.9% 250 ML SINGLE
     Route: 042
     Dates: start: 20170630, end: 20170630
  59. INJECTAFER [Suspect]
     Active Substance: FERRIC CARBOXYMALTOSE
     Dosage: 750 MILLIGRAM IN NACL 0.9% 250 ML, SINGLE
     Route: 042
     Dates: start: 20170915, end: 20170915
  60. OMEPRAZOLE. [Concomitant]
     Active Substance: OMEPRAZOLE
     Indication: PRODUCT USED FOR UNKNOWN INDICATION
     Dosage: 20 MILLIGRAM
     Dates: start: 2018
  61. AVASTIN [Concomitant]
     Active Substance: BEVACIZUMAB
     Indication: GASTROINTESTINAL HAEMORRHAGE

REACTIONS (17)
  - Back pain [Recovering/Resolving]
  - Stress fracture [Recovered/Resolved]
  - Osteomalacia [Not Recovered/Not Resolved]
  - Pain in extremity [Recovering/Resolving]
  - Hypophosphataemia [Recovering/Resolving]
  - Anxiety [Not Recovered/Not Resolved]
  - Inappropriate schedule of product administration [Unknown]
  - Gait disturbance [Recovered/Resolved]
  - Emotional distress [Not Recovered/Not Resolved]
  - Pain [Recovering/Resolving]
  - Impaired self-care [Not Recovered/Not Resolved]
  - Anhedonia [Not Recovered/Not Resolved]
  - Arthralgia [Not Recovered/Not Resolved]
  - Product use in unapproved indication [Unknown]
  - Joint range of motion decreased [Recovering/Resolving]
  - Hypophosphataemic osteomalacia [Not Recovered/Not Resolved]
  - Product quality issue [Unknown]

NARRATIVE: CASE EVENT DATE: 201705
